FAERS Safety Report 7416084-2 (Version None)
Quarter: 2011Q2

REPORT INFORMATION
  Report Type: 
  Country: None (occurrence: None)
  Receive Date: 20110406
  Receipt Date: 20110325
  Transmission Date: 20111010
  Serious: Yes (Life-Threatening, Hospitalization)
  Sender: FDA-Public Use
  Company Number: 875878

PATIENT
  Age: 29 Year
  Sex: Male
  Weight: 88 kg

DRUGS (5)
  1. DEXAMETHASONE [Concomitant]
  2. (ONDANSETRON) [Concomitant]
  3. (DOMPERIDONE) [Concomitant]
  4. OXALIPLATIN [Suspect]
     Indication: COLON CANCER
     Dosage: 260 MG MILLIGRAM(S), INTRAVENOUS
     Route: 042
     Dates: start: 20101221, end: 20101221
  5. CAPECITABINE [Concomitant]

REACTIONS (3)
  - PYREXIA [None]
  - NO THERAPEUTIC RESPONSE [None]
  - PORTAL VEIN THROMBOSIS [None]
